FAERS Safety Report 7540097-3 (Version None)
Quarter: 2011Q2

REPORT INFORMATION
  Report Type: 
  Country: None (occurrence: None)
  Receive Date: 20110610
  Receipt Date: 20110527
  Transmission Date: 20111010
  Serious: Yes (Death)
  Sender: FDA-Public Use
  Company Number: JP-TYCO HEALTHCARE/MALLINCKRODT-T201101150

PATIENT
  Sex: Male
  Weight: 56.6 kg

DRUGS (6)
  1. METHADONE HCL [Suspect]
     Dosage: 15 MG, BID EVERY 12 HRS
     Route: 048
     Dates: start: 20110509, end: 20110515
  2. METHADONE HCL [Suspect]
     Dosage: 15 MG QD
     Route: 048
     Dates: start: 20110516
  3. METHADONE HCL [Suspect]
     Indication: CANCER PAIN
     Dosage: 15 MG, TID EVERY 8 HRS
     Route: 048
     Dates: start: 20110422, end: 20110508
  4. SOLACET D [Concomitant]
     Dosage: 500 ML, QD
     Dates: start: 20110519
  5. FENTANYL [Concomitant]
     Dosage: 1.2 MG/HR
     Dates: start: 20110521
  6. POTASSIUM CHLORIDE [Suspect]
     Dosage: 500 ML, QD
     Dates: start: 20110520

REACTIONS (3)
  - CARDIO-RESPIRATORY ARREST [None]
  - PROSTATE CANCER [None]
  - EPISTAXIS [None]
